FAERS Safety Report 17014599 (Version 1)
Quarter: 2019Q4

REPORT INFORMATION
  Report Type: Spontaneous
  Country: GB (occurrence: GB)
  Receive Date: 20191111
  Receipt Date: 20191111
  Transmission Date: 20200122
  Serious: Yes (Hospitalization, Other)
  Sender: FDA-Public Use
  Company Number: GB-AUROBINDO-AUR-APL-2019-071508

PATIENT
  Age: 48 Year
  Sex: Male
  Weight: 60 kg

DRUGS (2)
  1. CHLORPROMAZINE HYDROCHLORIDE. [Suspect]
     Active Substance: CHLORPROMAZINE HYDROCHLORIDE
     Indication: SCHIZOPHRENIA
     Dosage: 50MG IN THE MORNING AND 25MG AT NIGHT
     Route: 048
     Dates: start: 20180601, end: 20180601
  2. SUMATRIPTAN. [Suspect]
     Active Substance: SUMATRIPTAN
     Indication: MIGRAINE
     Dosage: 50 MILLIGRAM, AS NECESSARY
     Dates: start: 20180601, end: 20180601

REACTIONS (2)
  - Seizure [Recovered/Resolved]
  - Loss of consciousness [Recovered/Resolved]

NARRATIVE: CASE EVENT DATE: 20180601
